FAERS Safety Report 9396264 (Version 1)
Quarter: 2013Q3

REPORT INFORMATION
  Report Type: Spontaneous
  Country: JP (occurrence: JP)
  Receive Date: 20130711
  Receipt Date: 20130711
  Transmission Date: 20140515
  Serious: Yes (Hospitalization)
  Sender: FDA-Public Use
  Company Number: JP-EISAI INC-E2090-02742-SPO-JP

PATIENT
  Age: 29 Year
  Sex: Female

DRUGS (3)
  1. EXCEGRAN [Suspect]
     Indication: PARTIAL SEIZURES WITH SECONDARY GENERALISATION
     Dosage: 300 MG/DAY
     Route: 048
  2. CARBAMAZEPINE [Concomitant]
     Indication: PARTIAL SEIZURES WITH SECONDARY GENERALISATION
     Dosage: 800 MG/DAY
     Route: 048
  3. GABAPENTIN [Concomitant]
     Indication: PARTIAL SEIZURES WITH SECONDARY GENERALISATION
     Dosage: 600 MG/DAY
     Route: 048

REACTIONS (4)
  - Hallucination, auditory [Recovered/Resolved]
  - Paranoia [Recovered/Resolved]
  - Stupor [Recovered/Resolved]
  - Restlessness [Recovered/Resolved]
